FAERS Safety Report 24055561 (Version 3)
Quarter: 2025Q2

REPORT INFORMATION
  Report Type: Spontaneous
  Country: US (occurrence: US)
  Receive Date: 20240705
  Receipt Date: 20250606
  Transmission Date: 20250716
  Serious: Yes (Other)
  Sender: ELI LILLY AND COMPANY
  Company Number: US-ELI_LILLY_AND_COMPANY-US202406019604

PATIENT
  Age: 46 Year
  Sex: Female
  Weight: 117 kg

DRUGS (12)
  1. TRULICITY [Suspect]
     Active Substance: DULAGLUTIDE
     Indication: Type 2 diabetes mellitus
     Dosage: 0.75 MG, WEEKLY (1/W)
     Route: 058
     Dates: start: 20230322, end: 20230523
  2. OZEMPIC [Suspect]
     Active Substance: SEMAGLUTIDE
     Indication: Type 2 diabetes mellitus
     Dosage: 0.25 MG, WEEKLY (1/W)
     Route: 058
     Dates: start: 20230315, end: 20230322
  3. METFORMIN [Concomitant]
     Active Substance: METFORMIN HYDROCHLORIDE
     Indication: Diabetes mellitus
     Dosage: 2 DOSAGE FORM, BID
     Route: 048
     Dates: start: 20120101
  4. BERBERINE [Concomitant]
     Active Substance: BERBERINE
     Indication: Diabetes mellitus
     Dates: start: 20170101
  5. LISINOPRIL [Concomitant]
     Active Substance: LISINOPRIL
     Indication: Blood pressure increased
     Dosage: 40 MG, DAILY
     Route: 048
     Dates: start: 20220101
  6. HYDROCHLOROTHIAZIDE [Concomitant]
     Active Substance: HYDROCHLOROTHIAZIDE
     Indication: Blood pressure increased
     Dosage: 50 MG, DAILY
     Route: 048
     Dates: start: 20220101, end: 20230712
  7. ATORVASTATIN [Concomitant]
     Active Substance: ATORVASTATIN
     Indication: Blood pressure increased
     Dosage: 20 MG, DAILY
     Route: 048
     Dates: start: 20220101
  8. WELLBUTRIN [Concomitant]
     Active Substance: BUPROPION HYDROCHLORIDE
     Indication: Eating disorder
     Dosage: 150 MG, BID
     Route: 048
     Dates: start: 20240101
  9. AMLODIPINE BESYLATE [Concomitant]
     Active Substance: AMLODIPINE BESYLATE
     Indication: Eating disorder
     Dates: start: 20230101
  10. PRILOSEC OTC [Concomitant]
     Active Substance: OMEPRAZOLE MAGNESIUM
     Indication: Dyspepsia
     Dates: start: 20040101
  11. IRON [Concomitant]
     Active Substance: IRON
     Indication: General physical health deterioration
     Dates: start: 20220101, end: 20230101
  12. DULCOLAX-S [Concomitant]
     Indication: Constipation
     Dates: start: 20220101

REACTIONS (10)
  - Contusion [Unknown]
  - Malnutrition [Recovered/Resolved]
  - Dehydration [Recovered/Resolved]
  - Impaired gastric emptying [Not Recovered/Not Resolved]
  - Vomiting [Not Recovered/Not Resolved]
  - Abdominal pain [Not Recovered/Not Resolved]
  - Diarrhoea [Recovered/Resolved]
  - Nausea [Not Recovered/Not Resolved]
  - Dyspepsia [Not Recovered/Not Resolved]
  - Constipation [Not Recovered/Not Resolved]

NARRATIVE: CASE EVENT DATE: 20230301
